FAERS Safety Report 7468942-0 (Version None)
Quarter: 2011Q2

REPORT INFORMATION
  Report Type: 
  Country: None (occurrence: None)
  Receive Date: 20110428
  Receipt Date: 20110418
  Transmission Date: 20111010
  Serious: Yes (Hospitalization, Other)
  Sender: FDA-Public Use
  Company Number: 2009SP016952

PATIENT
  Age: 26 Year
  Sex: Female
  Weight: 147.419 kg

DRUGS (6)
  1. BENEFIBER [Concomitant]
  2. DEPO-PROVERA [Concomitant]
  3. CLOTRIMAZOLE [Concomitant]
  4. DIFLUCAN [Concomitant]
  5. PREMARIN [Concomitant]
  6. NUVARING [Suspect]
     Indication: CONTRACEPTION
     Dosage: 1 DF; QM; VAG
     Route: 067
     Dates: start: 20060301, end: 20060921

REACTIONS (13)
  - COUGH [None]
  - BRONCHITIS [None]
  - RECTAL HAEMORRHAGE [None]
  - BLOOD PRESSURE DECREASED [None]
  - NASAL TURBINATE HYPERTROPHY [None]
  - NASAL SEPTUM DISORDER [None]
  - CHEST DISCOMFORT [None]
  - RHINITIS ALLERGIC [None]
  - VAGINAL HAEMORRHAGE [None]
  - PULMONARY EMBOLISM [None]
  - CHRONIC SINUSITIS [None]
  - DEEP VEIN THROMBOSIS [None]
  - PRODUCTIVE COUGH [None]
